FAERS Safety Report 9808382 (Version 1)
Quarter: 2014Q1

REPORT INFORMATION
  Report Type: Spontaneous
  Country: US (occurrence: None)
  Receive Date: 20140108
  Receipt Date: 20140108
  Transmission Date: 20141002
  Serious: No
  Sender: FDA-Public Use
  Company Number: CC13-1158

PATIENT
  Sex: Female

DRUGS (1)
  1. IMIQUIMOD [Suspect]
     Indication: ACTINIC KERATOSIS
     Dosage: 5 TIMES PER WEEK

REACTIONS (2)
  - Blister [None]
  - Incorrect drug administration duration [None]
